FAERS Safety Report 8535892-8 (Version None)
Quarter: 2012Q3

REPORT INFORMATION
  Report Type: 
  Country: None (occurrence: None)
  Receive Date: 20120718
  Receipt Date: 20120718
  Transmission Date: 20120928
  Serious: Yes (Life-Threatening, Hospitalization)
  Sender: FDA-Public Use
  Company Number: None

PATIENT
  Sex: Female
  Weight: 17.7 kg

DRUGS (2)
  1. TOCILIZUMAB 200 MG EVERY 2 WEEKS [Suspect]
     Indication: JUVENILE ARTHRITIS
     Dosage: EVERY 2 WEEKS IV
     Route: 042
     Dates: start: 20110801
  2. METHYLPREDNISOLONE SODIUM SUCCINATE [Suspect]
     Dates: start: 20110801

REACTIONS (2)
  - INTUSSUSCEPTION [None]
  - HAEMATOCHEZIA [None]
